FAERS Safety Report 17291102 (Version 1)
Quarter: 2020Q1

REPORT INFORMATION
  Report Type: Report from Study
  Country: TW (occurrence: TW)
  Receive Date: 20200121
  Receipt Date: 20200121
  Transmission Date: 20200409
  Serious: Yes (Hospitalization)
  Sender: FDA-Public Use
  Company Number: TW-BAYER-2019-236392

PATIENT
  Age: 81 Year
  Sex: Female
  Weight: 70 kg

DRUGS (66)
  1. STIVARGA [Suspect]
     Active Substance: REGORAFENIB
     Indication: HEPATOCELLULAR CARCINOMA
     Dosage: UNK
     Dates: start: 20191219, end: 201912
  2. ULTRACET [Concomitant]
     Active Substance: ACETAMINOPHEN\TRAMADOL HYDROCHLORIDE
     Indication: BACK PAIN
     Dosage: UNK UNK, PRN
     Dates: start: 20191220, end: 20191227
  3. COZAAR [Concomitant]
     Active Substance: LOSARTAN POTASSIUM
     Indication: HYPERTENSION
     Dosage: 50 MG, QD
     Dates: start: 20191219, end: 20191227
  4. IMOVANE [Concomitant]
     Active Substance: ZOPICLONE
     Indication: INSOMNIA
     Dosage: 7.5 MG, QD
     Dates: start: 20190807, end: 2019
  5. STILNOX [Concomitant]
     Active Substance: ZOLPIDEM TARTRATE
     Indication: INSOMNIA
     Dosage: 10 MG, QD
     Dates: start: 20191219, end: 20191220
  6. BROWN MIXTURE [GLYCYRRHIZA GLABRA EXTRACT;PAPAVER SOMNIFERUM;PIMPI [Concomitant]
     Indication: ASTHMA
     Dosage: 10 ML, TID
     Dates: start: 20190130, end: 20190206
  7. HYDROXYCHLOROQUINE [Concomitant]
     Active Substance: HYDROXYCHLOROQUINE
     Indication: RHEUMATOID ARTHRITIS
     Dosage: 200 MG, QD
     Dates: start: 20190807, end: 20191001
  8. RADI K [Concomitant]
     Dosage: 595 MG, TID
     Dates: start: 20180905, end: 20190226
  9. BARACLUDE [Concomitant]
     Active Substance: ENTECAVIR
     Indication: CHRONIC HEPATITIS B
     Dosage: 0.5 MG, QD
     Dates: start: 20191004
  10. THROUGH [Concomitant]
     Dosage: 20 MG, QD
     Dates: start: 20191219, end: 20191220
  11. ROSIS [Concomitant]
     Active Substance: FUROSEMIDE
     Indication: HYPERTENSION
     Dosage: 20 MG, BID
     Dates: start: 20190828
  12. SPIROTONE [Concomitant]
     Indication: ASCITES
     Dosage: 25 MG, BID
     Dates: start: 20190828, end: 2019
  13. IMOVANE [Concomitant]
     Active Substance: ZOPICLONE
     Indication: INSOMNIA
     Dosage: 7.5 MG, QD
     Dates: start: 20191219, end: 20191220
  14. STILNOX [Concomitant]
     Active Substance: ZOLPIDEM TARTRATE
     Indication: INSOMNIA
     Dosage: 10 MG, QD
     Dates: start: 20180328, end: 20190806
  15. STILNOX [Concomitant]
     Active Substance: ZOLPIDEM TARTRATE
     Indication: INSOMNIA
     Dosage: 10 MG, QD
     Dates: start: 20191002, end: 2019
  16. SINGULAIR [Concomitant]
     Active Substance: MONTELUKAST SODIUM
     Indication: ASTHMA
     Dosage: 10 MG, BID
     Dates: start: 20191030, end: 2019
  17. ULSAFE [Concomitant]
     Dosage: 150 MG, BID
     Dates: start: 20191001, end: 2019
  18. BROWN MIXTURE [GLYCYRRHIZA GLABRA EXTRACT;PAPAVER SOMNIFERUM;PIMPI [Concomitant]
     Indication: ASTHMA
     Dosage: 10 ML, TID
     Dates: start: 20190807, end: 20190814
  19. GASLAN [Concomitant]
     Indication: NAUSEA
     Dosage: 40 MG, QID
     Dates: start: 20191219, end: 20191227
  20. SPIROTONE [Concomitant]
     Indication: ASCITES
     Dosage: 25 MG, BID
     Dates: start: 20191219, end: 20191227
  21. ULSAFE [Concomitant]
     Dosage: 150 MG, QD
     Dates: start: 20191223, end: 20191224
  22. ACTEIN [Concomitant]
     Indication: ASTHMA
     Dosage: 66.7 MG, TID
     Dates: start: 20170627, end: 20191001
  23. CELEBREX [Concomitant]
     Active Substance: CELECOXIB
     Indication: OSTEOPOROSIS
     Dosage: 200 MG, QOD
     Dates: start: 20180425, end: 20191001
  24. ARAVA [Concomitant]
     Active Substance: LEFLUNOMIDE
     Indication: RHEUMATOID ARTHRITIS
     Dosage: 20 MG, QD
     Dates: start: 20140507, end: 20190416
  25. DEPYRETIN [Concomitant]
     Active Substance: ACETAMINOPHEN
     Indication: HEADACHE
     Dosage: 500 MG, PRN
     Dates: start: 20191219, end: 20191220
  26. FLOMOXEF SODIUM [Concomitant]
     Active Substance: FLOMOXEF SODIUM
     Indication: LEUKOCYTOSIS
     Dosage: 2000 MG, QD
     Dates: start: 20191220, end: 20191223
  27. FLURBIPROFEN. [Concomitant]
     Active Substance: FLURBIPROFEN
     Indication: BACK PAIN
     Dosage: 160 MG, QD
     Dates: start: 20191221, end: 20191222
  28. STIVARGA [Suspect]
     Active Substance: REGORAFENIB
     Indication: HEPATOCELLULAR CARCINOMA
     Dosage: 80 UNK
     Dates: start: 20191227
  29. BARACLUDE [Concomitant]
     Active Substance: ENTECAVIR
     Indication: CHRONIC HEPATITIS B
     Dosage: 0.5 MG, QD
     Dates: start: 20190611, end: 20190905
  30. ULTRACET [Concomitant]
     Active Substance: ACETAMINOPHEN\TRAMADOL HYDROCHLORIDE
     Indication: BACK PAIN
     Dosage: 1 DF, PRN
     Dates: start: 20191004, end: 2019
  31. XANAX [Concomitant]
     Active Substance: ALPRAZOLAM
     Indication: INSOMNIA
     Dosage: 0.5 MG, QD
     Dates: start: 20191002
  32. SINGULAIR [Concomitant]
     Active Substance: MONTELUKAST SODIUM
     Indication: ASTHMA
     Dosage: 10 MG, QD
     Dates: start: 20111123, end: 20191001
  33. HYDROXYCHLOROQUINE [Concomitant]
     Active Substance: HYDROXYCHLOROQUINE
     Indication: RHEUMATOID ARTHRITIS
     Dosage: 200 MG, QD
     Dates: start: 20180328, end: 20191001
  34. FLOMOXEF SODIUM [Concomitant]
     Active Substance: FLOMOXEF SODIUM
     Indication: LEUKOCYTOSIS
     Dosage: 2000 MG, QD
     Dates: start: 20191225, end: 20191226
  35. EUROTECH UREA [Concomitant]
     Dosage: 40 MG, BID
     Dates: start: 20191129, end: 20191202
  36. THROUGH [Concomitant]
     Dosage: 20 MG, QD
     Dates: start: 20190828
  37. GASLAN [Concomitant]
     Indication: NAUSEA
     Dosage: 40 MG, QID
     Dates: start: 20190828, end: 2019
  38. BROWN MIXTURE [GLYCYRRHIZA GLABRA EXTRACT;PAPAVER SOMNIFERUM;PIMPI [Concomitant]
     Indication: ASTHMA
     Dosage: 10 ML, TID
     Dates: start: 20190227, end: 20190306
  39. BROWN MIXTURE [GLYCYRRHIZA GLABRA EXTRACT;PAPAVER SOMNIFERUM;PIMPI [Concomitant]
     Indication: ASTHMA
     Dosage: 10 ML, TID
     Dates: start: 20190417, end: 20190424
  40. BROWN MIXTURE [GLYCYRRHIZA GLABRA EXTRACT;PAPAVER SOMNIFERUM;PIMPI [Concomitant]
     Indication: ASTHMA
     Dosage: 10 ML, TID
     Dates: start: 20190612, end: 20190619
  41. STIVARGA [Suspect]
     Active Substance: REGORAFENIB
     Indication: HEPATOCELLULAR CARCINOMA
     Dosage: 80 MG, QD
     Dates: start: 20191129, end: 2019
  42. STIVARGA [Suspect]
     Active Substance: REGORAFENIB
     Indication: HEPATOCELLULAR CARCINOMA
     Dosage: 160 MG, QD
     Dates: start: 20191206, end: 201912
  43. EUROTECH UREA [Concomitant]
     Dosage: 400 MG, BID
     Dates: start: 20191004, end: 20191007
  44. NORVASC [Concomitant]
     Active Substance: AMLODIPINE BESYLATE
     Indication: HYPERTENSION
     Dosage: 5 MG, QD
     Dates: start: 20191219, end: 20191227
  45. XANAX [Concomitant]
     Active Substance: ALPRAZOLAM
     Indication: INSOMNIA
     Dosage: 0.5 MG, QD
     Dates: start: 20171213, end: 20190806
  46. UREA. [Concomitant]
     Active Substance: UREA
     Dosage: 400 MG, BID
     Dates: start: 20190906, end: 20190909
  47. ULSAFE [Concomitant]
     Dosage: 150 MG, ONCE
     Dates: start: 20191222, end: 20191222
  48. BROWN MIXTURE [GLYCYRRHIZA GLABRA EXTRACT;PAPAVER SOMNIFERUM;PIMPI [Concomitant]
     Indication: ASTHMA
     Dosage: 10 ML, TID
     Dates: start: 20190320, end: 20190327
  49. XYZAL [Concomitant]
     Active Substance: LEVOCETIRIZINE DIHYDROCHLORIDE
     Indication: ASTHMA
     Dosage: 5 MG, QD
     Dates: start: 20120509, end: 20191001
  50. ULTRACET [Concomitant]
     Active Substance: ACETAMINOPHEN\TRAMADOL HYDROCHLORIDE
     Indication: BACK PAIN
     Dosage: UNK, PRN
     Dates: start: 20190823, end: 20190905
  51. COZAAR [Concomitant]
     Active Substance: LOSARTAN POTASSIUM
     Indication: HYPERTENSION
     Dosage: 50 MG, QD
     Dates: start: 20190828, end: 2019
  52. ROSIS [Concomitant]
     Active Substance: FUROSEMIDE
     Indication: ASCITES
     Dosage: 20 MG, BID
     Dates: start: 20191219, end: 20191227
  53. XANAX [Concomitant]
     Active Substance: ALPRAZOLAM
     Indication: INSOMNIA
     Dosage: 0.5 MG, QD
     Dates: start: 20190823, end: 20190905
  54. IMOVANE [Concomitant]
     Active Substance: ZOPICLONE
     Indication: INSOMNIA
     Dosage: 7.5 MG, QD
     Dates: start: 20171212
  55. BROWN MIXTURE [GLYCYRRHIZA GLABRA EXTRACT;PAPAVER SOMNIFERUM;PIMPI [Concomitant]
     Indication: ASTHMA
     Dosage: 10 ML, TID
     Dates: start: 20181205, end: 20181212
  56. BROWN MIXTURE [GLYCYRRHIZA GLABRA EXTRACT;PAPAVER SOMNIFERUM;PIMPI [Concomitant]
     Indication: ASTHMA
     Dosage: 10 ML, TID
     Dates: start: 20190102, end: 20190109
  57. BROWN MIXTURE [GLYCYRRHIZA GLABRA EXTRACT;PAPAVER SOMNIFERUM;PIMPI [Concomitant]
     Indication: ASTHMA
     Dosage: 10 ML, TID
     Dates: start: 20190515, end: 20190522
  58. BROWN MIXTURE [GLYCYRRHIZA GLABRA EXTRACT;PAPAVER SOMNIFERUM;PIMPI [Concomitant]
     Indication: ASTHMA
     Dosage: 10 ML, TID
     Dates: start: 20190710, end: 20190717
  59. FLUMARIN [FLUCONAZOLE] [Concomitant]
     Active Substance: FLUCONAZOLE
     Indication: LEUKOCYTOSIS
     Dosage: 2000 MG, TID
     Dates: start: 20191219, end: 20191220
  60. FLOMOXEF SODIUM [Concomitant]
     Active Substance: FLOMOXEF SODIUM
     Indication: LEUKOCYTOSIS
     Dosage: 2000 MG/L, BID
     Dates: start: 20191223, end: 20191225
  61. LOPERAM [Concomitant]
     Dosage: 2 MG, PRN
     Dates: start: 20190906
  62. NORVASC [Concomitant]
     Active Substance: AMLODIPINE BESYLATE
     Indication: HYPERTENSION
     Dosage: 5 MG, QD
     Dates: start: 20190828, end: 2019
  63. XANAX [Concomitant]
     Active Substance: ALPRAZOLAM
     Indication: INSOMNIA
     Dosage: 0.5 MG, QD
     Dates: start: 20191219, end: 20191220
  64. SINGULAIR [Concomitant]
     Active Substance: MONTELUKAST SODIUM
     Indication: ASTHMA
     Dosage: 10 MG, QD
     Dates: start: 20191219, end: 20191220
  65. KALIMATE [Concomitant]
     Active Substance: CALCIUM POLYSTYRENE SULFONATE
     Dosage: 5 G, TID
     Dates: start: 20190320, end: 20190416
  66. SENNOSIDES. [Concomitant]
     Active Substance: SENNOSIDES
     Dosage: 40 MG, QD
     Dates: start: 20191221, end: 20191227

REACTIONS (3)
  - Dyspnoea [Recovered/Resolved]
  - Dyspnoea [None]
  - Hepatic failure [Recovered/Resolved]

NARRATIVE: CASE EVENT DATE: 20191205
